FAERS Safety Report 26085668 (Version 1)
Quarter: 2025Q4

REPORT INFORMATION
  Report Type: Spontaneous
  Country: AU (occurrence: AU)
  Receive Date: 20251125
  Receipt Date: 20251125
  Transmission Date: 20260118
  Serious: Yes (Death)
  Sender: PHARMACOSMOS A/S
  Company Number: AU-NEBO-713519

PATIENT
  Age: 62 Year
  Sex: Male

DRUGS (1)
  1. IRON ISOMALTOSIDE 1000 [Suspect]
     Active Substance: IRON ISOMALTOSIDE 1000
     Indication: Iron deficiency

REACTIONS (2)
  - Endocarditis staphylococcal [Fatal]
  - Haemorrhage [Fatal]
